FAERS Safety Report 7525117-4 (Version None)
Quarter: 2011Q2

REPORT INFORMATION
  Report Type: 
  Country: None (occurrence: None)
  Receive Date: 20110606
  Receipt Date: 20091122
  Transmission Date: 20111010
  Serious: Yes (Death, Other)
  Sender: FDA-Public Use
  Company Number: US-BAYER-200940618NA

PATIENT
  Age: 59 Year
  Sex: Female
  Weight: 65 kg

DRUGS (23)
  1. THROMBIN LOCAL SOLUTION [Concomitant]
     Dosage: 5,000 UNITS
     Route: 042
  2. TRASYLOL [Suspect]
     Indication: INTRA-AORTIC BALLOON PLACEMENT
  3. RED BLOOD CELLS [Concomitant]
     Dosage: 4 UNITS
     Route: 042
     Dates: start: 20010227
  4. FENTANYL [Concomitant]
     Route: 042
  5. DIPRIVAN [Concomitant]
     Route: 042
  6. INSULIN [Concomitant]
     Route: 042
  7. INSULIN HUMULIN [Concomitant]
     Dosage: 35 U, BID
     Route: 058
  8. ACETYLSALICYLIC ACID SRT [Concomitant]
     Dosage: 325 MG, QD
     Route: 048
  9. PLASMA [Concomitant]
     Dosage: 4 U, ONCE
     Route: 042
     Dates: start: 20010227
  10. LASIX [Concomitant]
     Dosage: 40 MG, QD
     Route: 048
  11. ENALAPRIL MALEATE [Concomitant]
     Dosage: 5 MG, QD
     Route: 048
  12. PLATELETS [Concomitant]
     Dosage: 6 PACK
     Route: 042
     Dates: start: 20010227
  13. SPIRONOLACTONE [Concomitant]
     Dosage: 25 MG, QD
     Route: 048
  14. TYLENOL W/ CODEINE [Concomitant]
     Indication: PAIN
     Dosage: 1 TAB EVERY 4-6 HOURS AS NEEDED
     Route: 048
  15. SYNTHROID [Concomitant]
     Route: 048
  16. NITROGLYCERIN [Concomitant]
     Indication: CHEST PAIN
     Dosage: .24MG AS NEEDED
     Route: 060
  17. TRASYLOL [Suspect]
     Indication: CORONARY ARTERY BYPASS
     Dosage: UNK
     Route: 042
  18. DIGOXIN [Concomitant]
     Dosage: 25 MG, QD
     Route: 048
  19. LEVOTHYROXINE SODIUM [Concomitant]
     Dosage: 112 MCG/24HR, QD
     Route: 048
  20. VANCOMYCIN [Concomitant]
     Dosage: 1 GRAM
     Route: 042
  21. VERSED [Concomitant]
     Route: 042
  22. PROTAMINE SULFATE [Concomitant]
     Route: 042
  23. HEPARIN [Concomitant]
     Route: 042

REACTIONS (14)
  - UNEVALUABLE EVENT [None]
  - RENAL INJURY [None]
  - RENAL FAILURE [None]
  - FEAR [None]
  - ANXIETY [None]
  - DEPRESSION [None]
  - DEATH [None]
  - STRESS [None]
  - ANHEDONIA [None]
  - INJURY [None]
  - RENAL IMPAIRMENT [None]
  - PAIN [None]
  - MULTI-ORGAN FAILURE [None]
  - EMOTIONAL DISTRESS [None]
